FAERS Safety Report 15291586 (Version 1)
Quarter: 2018Q3

REPORT INFORMATION
  Report Type: Spontaneous
  Country: IT (occurrence: IT)
  Receive Date: 20180817
  Receipt Date: 20180817
  Transmission Date: 20181010
  Serious: Yes (Other)
  Sender: FDA-Public Use
  Company Number: IT-TEVA-2018-IT-945249

PATIENT
  Age: 71 Year
  Sex: Female

DRUGS (2)
  1. ALIFLUS DISKUS 50 MICROGRAMMI/250 MICROGRAMMI/DOSE DI POLVERE PER INAL [Concomitant]
  2. AMOXICILLIN W/CLAVULANIC ACID [Suspect]
     Active Substance: AMOXICILLIN\CLAVULANIC ACID
     Dosage: 2 DOSAGE FORMS DAILY;
     Route: 048

REACTIONS (3)
  - Hypersensitivity [Recovering/Resolving]
  - Pruritus [Recovering/Resolving]
  - Dyspnoea [Recovering/Resolving]

NARRATIVE: CASE EVENT DATE: 20180612
